FAERS Safety Report 18269585 (Version 1)
Quarter: 2020Q3

REPORT INFORMATION
  Report Type: Spontaneous
  Country: US (occurrence: US)
  Receive Date: 20200915
  Receipt Date: 20200915
  Transmission Date: 20201103
  Serious: Yes (Death)
  Sender: FDA-Public Use
  Company Number: US-FRESENIUS KABI-FK202009420

PATIENT
  Age: 67 Year
  Sex: Female

DRUGS (1)
  1. DEXAMETHASONE INJECTION (MANUFACTURER UNKNOWN) [Suspect]
     Active Substance: DEXAMETHASONE
     Indication: RADIATION NECROSIS
     Dosage: UNKNOWN
     Route: 065

REACTIONS (2)
  - Inappropriate schedule of product administration [Fatal]
  - Adrenal insufficiency [Fatal]
